FAERS Safety Report 23345198 (Version 1)
Quarter: 2023Q4

REPORT INFORMATION
  Report Type: Spontaneous
  Country: FR (occurrence: FR)
  Receive Date: 20231228
  Receipt Date: 20231228
  Transmission Date: 20240110
  Serious: Yes (Hospitalization)
  Sender: FDA-Public Use
  Company Number: FR-AFSSAPS-TO2023002153

PATIENT
  Age: 70 Year
  Sex: Male
  Weight: 79.5 kg

DRUGS (7)
  1. GABAPENTIN [Suspect]
     Active Substance: GABAPENTIN
     Indication: Product used for unknown indication
     Dosage: 700 MILLIGRAM, ONCE A DAY (300 MG : 1-0-1 CP/JOUR100 MG : 0-1-0 CP/JOUR)
     Route: 048
  2. ACETAMINOPHEN\OPIUM [Suspect]
     Active Substance: ACETAMINOPHEN\OPIUM
     Indication: Pain
     Dosage: NR   : 2-2-2 CP/J
     Route: 048
     Dates: end: 20230411
  3. NEFOPAM HYDROCHLORIDE [Suspect]
     Active Substance: NEFOPAM HYDROCHLORIDE
     Indication: Pain
     Dosage: 3 DOSAGE FORM, DAILY (NR : 3 CP/JOUR)
     Route: 048
     Dates: end: 20230421
  4. OXAZEPAM [Suspect]
     Active Substance: OXAZEPAM
     Indication: Pain
     Dosage: 20 MILLIGRAM, ONCE A DAY, 10 MG : 1-0-1 CP/J
     Route: 048
  5. ANAFRANIL [Suspect]
     Active Substance: CLOMIPRAMINE HYDROCHLORIDE
     Indication: Pain
     Dosage: 75 MILLIGRAM, ONCE A DAY (25 MG : 1-1-1 CP/JOUR)
     Route: 048
     Dates: start: 20230223, end: 20230412
  6. FENTANYL [Suspect]
     Active Substance: FENTANYL\FENTANYL CITRATE
     Indication: Product used for unknown indication
     Dosage: 1 DOSAGE FORM
     Route: 023
     Dates: start: 20230419
  7. FENTANYL [Suspect]
     Active Substance: FENTANYL\FENTANYL CITRATE
     Dosage: 1 DOSAGE FORM, 3 TIMES A DAY
     Route: 023
     Dates: start: 20230421

REACTIONS (1)
  - Confusional state [Recovered/Resolved]

NARRATIVE: CASE EVENT DATE: 20230421
